FAERS Safety Report 5675248-9 (Version None)
Quarter: 2008Q1

REPORT INFORMATION
  Report Type: 
  Country: None (occurrence: None)
  Receive Date: 20080320
  Receipt Date: 20080310
  Transmission Date: 20080703
  Serious: Yes (Hospitalization)
  Sender: FDA-Public Use
  Company Number: CA-ELI_LILLY_AND_COMPANY-CA200803002140

PATIENT
  Age: 67 Year
  Sex: Female

DRUGS (14)
  1. FORTEO [Suspect]
     Indication: OSTEOPOROSIS
     Dosage: 20 UG, DAILY (1/D)
     Route: 058
     Dates: start: 20061204
  2. EFFEXOR [Concomitant]
  3. CARBOCAL D [Concomitant]
  4. VITAMIN D [Concomitant]
  5. PREMARIN [Concomitant]
  6. LIPITOR [Concomitant]
  7. ACETAMINOPHEN [Concomitant]
  8. LEVATE [Concomitant]
  9. SPIRIVA [Concomitant]
  10. ADVAIR DISKUS 100/50 [Concomitant]
  11. RATIO-SALBUTAMOL HFA [Concomitant]
  12. NEXIUM [Concomitant]
  13. DILAUDID [Concomitant]
  14. APO-PREDNISONE [Concomitant]

REACTIONS (2)
  - CHOLELITHIASIS [None]
  - PAIN [None]
